FAERS Safety Report 8031215-1 (Version None)
Quarter: 2012Q1

REPORT INFORMATION
  Report Type: 
  Country: None (occurrence: None)
  Receive Date: 20120105
  Receipt Date: 20111223
  Transmission Date: 20120608
  Serious: Yes (Death, Hospitalization)
  Sender: FDA-Public Use
  Company Number: EU-2011-10571

PATIENT
  Age: 78 Year
  Sex: Female

DRUGS (6)
  1. ASPIRIN [Concomitant]
  2. CYMBALTA [Concomitant]
  3. METOPROLOL TARTRATE [Concomitant]
  4. PLETAL [Suspect]
     Indication: PERIPHERAL ARTERIAL OCCLUSIVE DISEASE
     Dosage: 100 MG MILLIGRAM(S), QD, ORAL
     Route: 048
     Dates: start: 20100401, end: 20111029
  5. PANTOPRAZOLE SODIUM [Concomitant]
  6. ACTONEL [Concomitant]

REACTIONS (2)
  - SEPSIS [None]
  - PANCYTOPENIA [None]
